FAERS Safety Report 15734914 (Version 7)
Quarter: 2023Q1

REPORT INFORMATION
  Report Type: Spontaneous
  Country: FR (occurrence: FR)
  Receive Date: 20181218
  Receipt Date: 20230106
  Transmission Date: 20230417
  Serious: Yes (Death, Hospitalization, Other)
  Sender: FDA-Public Use
  Company Number: FR-OTSUKA-DJ20083119

PATIENT
  Age: 56 Year
  Sex: Male
  Weight: 73 kg

DRUGS (28)
  1. XANAX [Suspect]
     Active Substance: ALPRAZOLAM
     Dosage: 1 DOSAGE FORM, TID
     Route: 065
     Dates: start: 20080718
  2. ALPRAZOLAM [Suspect]
     Active Substance: ALPRAZOLAM
     Indication: Psychotic disorder
     Dosage: 0.25 MILLIGRAM, QD, 3 DF, TID (0.25 MG)
     Route: 048
     Dates: start: 20080718
  3. ALPRAZOLAM [Suspect]
     Active Substance: ALPRAZOLAM
     Dosage: 3 DF, TID (0.25 MG)
     Route: 048
     Dates: start: 20080718
  4. HYDROXYZINE [Suspect]
     Active Substance: HYDROXYZINE HYDROCHLORIDE
     Indication: Product used for unknown indication
     Dosage: 100 MILLIGRAM
     Route: 065
     Dates: start: 20080621
  5. AMOXICILLIN\CLOXACILLIN [Suspect]
     Active Substance: AMOXICILLIN\CLOXACILLIN
     Indication: Lung disorder
     Dosage: 1 GRAM
     Route: 065
     Dates: start: 20080622, end: 20080630
  6. AMOXICILLIN [Suspect]
     Active Substance: AMOXICILLIN
     Indication: Lung disorder
     Dosage: 3 GRAM, QD(1 G, TID)
     Route: 065
     Dates: start: 20080622, end: 20080630
  7. AMISULPRIDE [Suspect]
     Active Substance: AMISULPRIDE
     Indication: Psychotic disorder
     Dosage: 50 MILLIGRAM, QD
     Route: 048
     Dates: start: 20080621
  8. AMISULPRIDE [Suspect]
     Active Substance: AMISULPRIDE
     Indication: Psychotic disorder
     Dosage: 50 MILLIGRAM, QD
     Route: 048
     Dates: start: 20080621
  9. AMOXICILLIN\CLAVULANIC ACID [Suspect]
     Active Substance: AMOXICILLIN\CLAVULANIC ACID
     Indication: Pneumonia aspiration
     Dosage: 3 GRAM, QD (1 G, TID)(3 DF TID OR 9 DF QD)
     Route: 065
     Dates: start: 20080622, end: 20080630
  10. AMOXICILLIN\CLAVULANIC ACID [Suspect]
     Active Substance: AMOXICILLIN\CLAVULANIC ACID
     Indication: Lung disorder
     Dosage: 1 GRAM, QD
     Route: 048
     Dates: start: 20080622, end: 20080630
  11. AMOXICILLIN\CLAVULANIC ACID [Suspect]
     Active Substance: AMOXICILLIN\CLAVULANIC ACID
     Dosage: 9 DOSAGE FORM, QD
     Route: 048
     Dates: start: 20080622, end: 20080630
  12. ABILIFY [Suspect]
     Active Substance: ARIPIPRAZOLE
     Indication: Psychotic disorder
     Dosage: 10 MILLIGRAM, QD
     Route: 048
     Dates: start: 20080715
  13. ABILIFY [Suspect]
     Active Substance: ARIPIPRAZOLE
     Dosage: UNK
     Route: 065
  14. TROPATEPINE HYDROCHLORIDE [Suspect]
     Active Substance: TROPATEPINE HYDROCHLORIDE
     Indication: Psychotic disorder
     Dosage: 2 DF, BID (10 MG)(4 DF QD)
     Route: 048
     Dates: start: 20080621
  15. LOXAPINE [Suspect]
     Active Substance: LOXAPINE
     Indication: Psychotic disorder
     Dosage: 3 DF, TID (25 MG)(9 DF, QD)
     Route: 065
     Dates: start: 20080703
  16. CYAMEMAZINE [Suspect]
     Active Substance: CYAMEMAZINE
     Indication: Psychotic disorder
     Dosage: 25 MILLIGRAM, QD, 2 DF, BID (50 MG)
     Route: 048
     Dates: start: 20080718
  17. CYAMEMAZINE [Suspect]
     Active Substance: CYAMEMAZINE
     Dosage: 2 DF, BID (50 MG)
     Route: 048
     Dates: start: 20080718
  18. TROPATEPINE [Suspect]
     Active Substance: TROPATEPINE
     Indication: Product used for unknown indication
     Dosage: 10 MILLIGRAM, QD
     Route: 048
     Dates: start: 20080621
  19. TROPATEPINE [Suspect]
     Active Substance: TROPATEPINE
     Dosage: 4 DOSAGE FORM, QD, (2 DF, BID (10 MG))
     Route: 048
     Dates: start: 20080621
  20. CYAMEMAZINE [Suspect]
     Active Substance: CYAMEMAZINE
     Indication: Psychotic disorder
     Dosage: 25 MILLIGRAM
     Route: 065
  21. CYAMEMAZINE [Suspect]
     Active Substance: CYAMEMAZINE
     Dosage: 4 DOSAGE FORM, QD (2 DF, BID (50 MG))
     Route: 048
     Dates: start: 20080718
  22. AMOXICILLIN TRIHYDRATE [Suspect]
     Active Substance: AMOXICILLIN
     Indication: Lung disorder
     Dosage: 3 GRAM, QD
     Route: 065
     Dates: start: 20080622, end: 20080630
  23. EFFERALGAN [Concomitant]
     Active Substance: ACETAMINOPHEN
     Indication: Product used for unknown indication
     Dosage: 500 MG, UNK (500 MG 6 DAILY)
     Route: 048
     Dates: start: 20080622, end: 20080625
  24. ACETAMINOPHEN [Concomitant]
     Active Substance: ACETAMINOPHEN
     Indication: Product used for unknown indication
     Dosage: UNK
     Route: 065
  25. ACETAMINOPHEN [Concomitant]
     Active Substance: ACETAMINOPHEN
     Dosage: 500 MG, UNK (500 MG 6 DAILY)
     Route: 048
     Dates: start: 20080622, end: 20080625
  26. PHLOROGLUCINOL [Concomitant]
     Active Substance: PHLOROGLUCINOL
     Indication: Product used for unknown indication
     Dosage: UNK
     Route: 065
     Dates: start: 20080626
  27. ALBUTEROL [Concomitant]
     Active Substance: ALBUTEROL
     Indication: Product used for unknown indication
     Dosage: UNK
     Route: 065
     Dates: start: 20080629
  28. KETOPROFEN [Concomitant]
     Active Substance: KETOPROFEN
     Indication: Product used for unknown indication
     Dosage: 4 DOSAGE FORM
     Route: 065
     Dates: start: 20080622, end: 20080626

REACTIONS (6)
  - Acute kidney injury [Fatal]
  - Sepsis [Fatal]
  - Enterocolitis [Fatal]
  - Diarrhoea infectious [Fatal]
  - Leukocytosis [Fatal]
  - Hyperleukocytosis [Fatal]

NARRATIVE: CASE EVENT DATE: 20080718
